FAERS Safety Report 5510472-7 (Version None)
Quarter: 2007Q4

REPORT INFORMATION
  Report Type: 
  Country: None (occurrence: None)
  Receive Date: 20071108
  Receipt Date: 20071029
  Transmission Date: 20080405
  Serious: Yes (Death, Hospitalization)
  Sender: FDA-Public Use
  Company Number: IT-PFIZER INC-2007091391

PATIENT
  Sex: Male

DRUGS (4)
  1. SUTENT [Suspect]
     Indication: RENAL CANCER METASTATIC
     Dosage: DAILY DOSE:50MG
     Route: 048
     Dates: start: 20070822, end: 20070918
  2. NEBILOX [Concomitant]
     Route: 048
  3. DELTACORTENE [Concomitant]
     Route: 048
  4. ZANTAC [Concomitant]
     Route: 048

REACTIONS (1)
  - RESPIRATORY FAILURE [None]
